FAERS Safety Report 17938291 (Version 3)
Quarter: 2020Q3

REPORT INFORMATION
  Report Type: Spontaneous
  Country: AU (occurrence: AU)
  Receive Date: 20200624
  Receipt Date: 20200818
  Transmission Date: 20201103
  Serious: Yes (Hospitalization)
  Sender: FDA-Public Use
  Company Number: AU-BAXTER-2020BAX012733

PATIENT
  Age: 77 Year
  Sex: Female

DRUGS (8)
  1. STERILE WATER [Suspect]
     Active Substance: WATER
     Indication: MEDICATION DILUTION
     Dosage: 180 ML/HOUR OVER 90 MINUTES
     Route: 042
     Dates: start: 20200612
  2. BAXTER 0.9% SODIUM CHLORIDE 900MG_100ML INJECTION BP BAG AHB1307_AHB13 [Suspect]
     Active Substance: SODIUM CHLORIDE
     Dosage: 100 ML/HR
     Route: 042
     Dates: start: 20200612
  3. TRASTUZUMAB. [Suspect]
     Active Substance: TRASTUZUMAB
     Indication: INVASIVE DUCTAL BREAST CARCINOMA
     Dosage: 180 ML/HOUR OVER 90 MINUTES
     Route: 042
     Dates: start: 20200612
  4. PERTUZUMAB. [Suspect]
     Active Substance: PERTUZUMAB
     Indication: PRODUCT USED FOR UNKNOWN INDICATION
     Route: 042
  5. BAXTER 0.9% SODIUM CHLORIDE 900MG_100ML INJECTION BP BAG AHB1307_AHB13 [Suspect]
     Active Substance: SODIUM CHLORIDE
     Indication: MEDICATION DILUTION
     Dosage: 180 ML/HOUR OVER 90 MINUTES
     Route: 042
     Dates: start: 20200612
  6. TRASTUZUMAB. [Suspect]
     Active Substance: TRASTUZUMAB
     Dosage: 100 ML/HR
     Route: 042
     Dates: start: 20200612
  7. PACLITAXEL. [Suspect]
     Active Substance: PACLITAXEL
     Indication: PRODUCT USED FOR UNKNOWN INDICATION
     Route: 065
  8. STERILE WATER [Suspect]
     Active Substance: WATER
     Dosage: 100 ML/HR
     Route: 042
     Dates: start: 20200612

REACTIONS (2)
  - Pyrexia [Recovering/Resolving]
  - Chills [Recovering/Resolving]

NARRATIVE: CASE EVENT DATE: 20200612
